FAERS Safety Report 4845002-6 (Version None)
Quarter: 2005Q4

REPORT INFORMATION
  Report Type: 
  Country: None (occurrence: None)
  Receive Date: 20051205
  Receipt Date: 20051123
  Transmission Date: 20060501
  Serious: Yes (Death)
  Sender: FDA-Public Use
  Company Number: US-MERCK-0511USA04195

PATIENT
  Age: 85 Year
  Sex: Female
  Weight: 61 kg

DRUGS (2)
  1. VIOXX [Suspect]
     Indication: ARTHRITIS
     Route: 048
     Dates: start: 20030901, end: 20040104
  2. VIOXX [Suspect]
     Indication: OEDEMA PERIPHERAL
     Route: 048
     Dates: start: 20030901, end: 20040104

REACTIONS (1)
  - CEREBROVASCULAR ACCIDENT [None]
